FAERS Safety Report 26116651 (Version 1)
Quarter: 2025Q4

REPORT INFORMATION
  Report Type: Spontaneous
  Country: US (occurrence: None)
  Receive Date: 20251203
  Receipt Date: 20251203
  Transmission Date: 20260117
  Serious: Yes (Hospitalization)
  Sender: FDA-CTU
  Company Number: None

PATIENT
  Age: 4 Year
  Sex: Male
  Weight: 14.4 kg

DRUGS (4)
  1. CARBOPLATIN [Suspect]
     Active Substance: CARBOPLATIN
     Dates: end: 20251117
  2. ETOPOSIDE [Suspect]
     Active Substance: ETOPOSIDE
     Dates: end: 20251127
  3. FILGRASTIM [Suspect]
     Active Substance: FILGRASTIM
     Dates: end: 20251127
  4. MELPHALAN [Suspect]
     Active Substance: MELPHALAN
     Dates: end: 20251116

REACTIONS (6)
  - Respiratory failure [None]
  - Hypervolaemia [None]
  - Acute kidney injury [None]
  - Venoocclusive liver disease [None]
  - Multiple organ dysfunction syndrome [None]
  - Epistaxis [None]

NARRATIVE: CASE EVENT DATE: 20251127
